FAERS Safety Report 23362078 (Version 1)
Quarter: 2024Q1

REPORT INFORMATION
  Report Type: Spontaneous
  Country: FR (occurrence: FR)
  Receive Date: 20240103
  Receipt Date: 20240103
  Transmission Date: 20240409
  Serious: Yes (Other)
  Sender: FDA-Public Use
  Company Number: FR-AMGEN-FRASP2023232470

PATIENT

DRUGS (21)
  1. BEVACIZUMAB [Suspect]
     Active Substance: BEVACIZUMAB
     Indication: Cholangiocarcinoma
     Dosage: 5 MILLIGRAM/KG (OVER 90 MIN)
     Route: 042
  2. BEVACIZUMAB [Suspect]
     Active Substance: BEVACIZUMAB
     Indication: Cholangiocarcinoma
  3. BEVACIZUMAB [Suspect]
     Active Substance: BEVACIZUMAB
     Indication: Gallbladder cancer
  4. LEUCOVORIN [Concomitant]
     Active Substance: LEUCOVORIN\LEUCOVORIN CALCIUM
     Indication: Cholangiocarcinoma
     Dosage: 200 MILLIGRAM/M^2 (OVER 120 MIN)
     Route: 042
  5. LEUCOVORIN [Concomitant]
     Active Substance: LEUCOVORIN\LEUCOVORIN CALCIUM
     Indication: Cholangiocarcinoma
  6. LEUCOVORIN [Concomitant]
     Active Substance: LEUCOVORIN\LEUCOVORIN CALCIUM
     Indication: Gallbladder cancer
  7. FLUOROURACIL [Concomitant]
     Active Substance: FLUOROURACIL
     Indication: Gallbladder cancer
     Dosage: 400 MILLIGRAM/M^2 (BOLUS)
     Route: 042
  8. FLUOROURACIL [Concomitant]
     Active Substance: FLUOROURACIL
     Indication: Cholangiocarcinoma
     Dosage: 2400 MILLIGRAM/M^2 (46-H CONTINUOUS INTRAVENOUS INFUSION)
     Route: 042
  9. FLUOROURACIL [Concomitant]
     Active Substance: FLUOROURACIL
     Indication: Cholangiocarcinoma
  10. IRINOTECAN [Concomitant]
     Active Substance: IRINOTECAN
     Indication: Gallbladder cancer
     Dosage: 180 MILLIGRAM/M^2 (OVER 90 MIN)
     Route: 065
  11. IRINOTECAN [Concomitant]
     Active Substance: IRINOTECAN
     Indication: Cholangiocarcinoma
  12. IRINOTECAN [Concomitant]
     Active Substance: IRINOTECAN
     Indication: Cholangiocarcinoma
  13. CAPECITABINE [Concomitant]
     Active Substance: CAPECITABINE
     Indication: Gallbladder cancer
  14. CAPECITABINE [Concomitant]
     Active Substance: CAPECITABINE
     Indication: Cholangiocarcinoma
  15. CAPECITABINE [Concomitant]
     Active Substance: CAPECITABINE
     Indication: Cholangiocarcinoma
  16. GEMCITABINE [Concomitant]
     Active Substance: GEMCITABINE
     Indication: Cholangiocarcinoma
     Dosage: UNK
     Route: 065
  17. GEMCITABINE [Concomitant]
     Active Substance: GEMCITABINE
     Indication: Cholangiocarcinoma
  18. GEMCITABINE [Concomitant]
     Active Substance: GEMCITABINE
     Indication: Gallbladder cancer
  19. GEMCITABINE HYDROCHLORIDE\OXALIPLATIN [Concomitant]
     Active Substance: GEMCITABINE HYDROCHLORIDE\OXALIPLATIN
     Indication: Gallbladder cancer
     Dosage: UNK
     Route: 065
  20. GEMCITABINE HYDROCHLORIDE\OXALIPLATIN [Concomitant]
     Active Substance: GEMCITABINE HYDROCHLORIDE\OXALIPLATIN
     Indication: Cholangiocarcinoma
  21. GEMCITABINE HYDROCHLORIDE\OXALIPLATIN [Concomitant]
     Active Substance: GEMCITABINE HYDROCHLORIDE\OXALIPLATIN
     Indication: Cholangiocarcinoma

REACTIONS (17)
  - Duodenal ulcer haemorrhage [Unknown]
  - Oesophageal varices haemorrhage [Unknown]
  - Cholangiocarcinoma [Unknown]
  - Gallbladder cancer metastatic [Unknown]
  - Gastric ulcer haemorrhage [Unknown]
  - Neutropenia [Unknown]
  - Thrombocytopenia [Unknown]
  - Anaemia [Unknown]
  - Nausea [Unknown]
  - Therapy partial responder [Unknown]
  - Haemorrhage [Unknown]
  - Diarrhoea [Unknown]
  - Infection [Unknown]
  - Proteinuria [Unknown]
  - Mucosal inflammation [Unknown]
  - Hypertension [Unknown]
  - Off label use [Unknown]
